FAERS Safety Report 5941910-3 (Version None)
Quarter: 2008Q4

REPORT INFORMATION
  Report Type: 
  Country: None (occurrence: None)
  Receive Date: 20081105
  Receipt Date: 20081027
  Transmission Date: 20090506
  Serious: Yes (Other)
  Sender: FDA-Public Use
  Company Number: GB-ASTRAZENECA-2008GB02056

PATIENT
  Age: 50 Year
  Sex: Male

DRUGS (3)
  1. ZOLADEX [Suspect]
     Route: 058
     Dates: start: 20051201
  2. ZOLADEX [Suspect]
     Route: 058
  3. LEUPROLIDE ACETATE [Suspect]
     Route: 065

REACTIONS (2)
  - BLOOD TESTOSTERONE INCREASED [None]
  - PROSTATIC SPECIFIC ANTIGEN INCREASED [None]
